FAERS Safety Report 5626140-7 (Version None)
Quarter: 2008Q1

REPORT INFORMATION
  Report Type: 
  Country: None (occurrence: None)
  Receive Date: 20080214
  Receipt Date: 20080201
  Transmission Date: 20080703
  Serious: Yes (Hospitalization)
  Sender: FDA-Public Use
  Company Number: IL-AMGEN-UK262503

PATIENT
  Age: 30 Year
  Sex: Male

DRUGS (10)
  1. NEULASTIM [Suspect]
     Indication: CHEMOTHERAPY
     Route: 065
     Dates: start: 20071106
  2. CYCLOPHOSPHAMIDE [Concomitant]
     Dates: start: 20071001
  3. ADRIAMYCIN PFS [Concomitant]
     Dates: start: 20071001
  4. DOXORUBICIN HYDROCHLORIDE [Concomitant]
     Dates: start: 20071001
  5. ETOPOSIDE [Concomitant]
     Dates: start: 20071001
  6. PROCARBAZINE [Concomitant]
     Dates: start: 20071001
  7. DEXAMETHASONE TAB [Concomitant]
     Route: 042
     Dates: start: 20071001
  8. PREDNISONE TAB [Concomitant]
     Dates: start: 20071001
  9. VINCRISTINE [Concomitant]
     Dates: start: 20071001
  10. BLEOMYCIN [Concomitant]
     Dates: start: 20071001

REACTIONS (4)
  - BONE MARROW DISORDER [None]
  - BONE PAIN [None]
  - LEUKOCYTOSIS [None]
  - OSTEONECROSIS [None]
